FAERS Safety Report 8936766 (Version 1)
Quarter: 2012Q4

REPORT INFORMATION
  Report Type: 
  Country: GB (occurrence: GB)
  Receive Date: 20121130
  Receipt Date: 20121130
  Transmission Date: 20130627
  Serious: Yes (Hospitalization)
  Sender: FDA-Public Use
  Company Number: GB-ASTRAZENECA-2012SE88923

PATIENT

DRUGS (16)
  1. OMEPRAZOLE [Suspect]
  2. MIRTAZAPINE [Suspect]
  3. HEPARIN [Suspect]
  4. NUTRITIONAL SUPPLEMENT [Suspect]
     Dates: start: 20121031
  5. OMEGAVEN [Suspect]
     Route: 042
  6. AMINO ACIDS\DEXTROSE\ELECTROLYTES\SOYBEAN OIL [Suspect]
     Indication: PARENTERAL NUTRITION
     Route: 042
     Dates: start: 20121026, end: 20121031
  7. BISOPROLOL [Concomitant]
  8. CIPROFLOXACIN [Concomitant]
  9. CODEINE [Concomitant]
  10. NORADRENALINE [Concomitant]
  11. NOREPINEPHRINE [Concomitant]
  12. TETRACYCLINE [Concomitant]
  13. NYSTATIN [Concomitant]
     Route: 061
  14. RANITIDINE [Concomitant]
  15. LANREOTIDE [Concomitant]
  16. LOPERAMIDE [Concomitant]

REACTIONS (1)
  - Blood triglycerides increased [Not Recovered/Not Resolved]
